FAERS Safety Report 14840083 (Version 3)
Quarter: 2019Q3

REPORT INFORMATION
  Report Type: Spontaneous
  Country: US (occurrence: US)
  Receive Date: 20180503
  Receipt Date: 20190708
  Transmission Date: 20191004
  Serious: Yes (Hospitalization)
  Sender: FDA-Public Use
  Company Number: US-BIOGEN-2011BI004597

PATIENT
  Age: 34 Year
  Sex: Female

DRUGS (3)
  1. AVONEX [Suspect]
     Active Substance: INTERFERON BETA-1A
     Indication: MULTIPLE SCLEROSIS
     Route: 050
     Dates: start: 20070201, end: 20110601
  2. AVONEX [Suspect]
     Active Substance: INTERFERON BETA-1A
     Route: 050
     Dates: start: 20110901, end: 2013
  3. AVONEX [Suspect]
     Active Substance: INTERFERON BETA-1A
     Route: 050
     Dates: start: 2013

REACTIONS (9)
  - Memory impairment [Unknown]
  - Concussion [Recovered/Resolved]
  - Limb mass [Not Recovered/Not Resolved]
  - Alopecia [Recovered/Resolved]
  - Fall [Recovered/Resolved]
  - Cast application [Recovered/Resolved]
  - Invasive ductal breast carcinoma [Recovered/Resolved]
  - Contusion [Not Recovered/Not Resolved]
  - Epistaxis [Recovered/Resolved]

NARRATIVE: CASE EVENT DATE: 20110126
